FAERS Safety Report 21123919 (Version 7)
Quarter: 2025Q3

REPORT INFORMATION
  Report Type: Spontaneous
  Country: PK (occurrence: PK)
  Receive Date: 20220725
  Receipt Date: 20250729
  Transmission Date: 20251021
  Serious: Yes (Other)
  Sender: AMGEN
  Company Number: PK-PFIZER INC-202200004578

PATIENT
  Age: 73 Year
  Sex: Female

DRUGS (26)
  1. ENBREL [Suspect]
     Active Substance: ETANERCEPT
     Indication: Rheumatoid arthritis
     Dosage: 50 MG, WEEKLY
     Route: 058
     Dates: start: 20211204, end: 202306
  2. ENBREL [Suspect]
     Active Substance: ETANERCEPT
     Route: 058
     Dates: start: 202306
  3. ENBREL [Suspect]
     Active Substance: ETANERCEPT
     Dosage: 50 MG, WEEKLY
     Route: 058
     Dates: start: 20240821
  4. ENBREL [Suspect]
     Active Substance: ETANERCEPT
     Route: 058
  5. PROLIA [Concomitant]
     Active Substance: DENOSUMAB
     Route: 065
  6. DELTACORTRIL [Concomitant]
     Active Substance: PREDNISOLONE
     Route: 065
  7. LEFLUNOMIDE [Concomitant]
     Active Substance: LEFLUNOMIDE
  8. Femidol plus [Concomitant]
  9. DICLOFENAC POTASSIUM [Concomitant]
     Active Substance: DICLOFENAC POTASSIUM
  10. Cac [Concomitant]
     Dosage: 1 DF, 1X/DAY CONTINUE
  11. Sunny d [Concomitant]
  12. FOLIC ACID [Concomitant]
     Active Substance: FOLIC ACID
     Dosage: 5 MG, 1X/DAY IN MORNING CONTINUE
  13. Surbex Z [Concomitant]
     Dosage: 1 DF, 1X/DAY, CONTINUE
  14. HYDROXYCHLOROQUINE SULFATE [Concomitant]
     Active Substance: HYDROXYCHLOROQUINE SULFATE
     Dosage: 200 MG, 0+0+1+0 , AFTER MEAL, 1 TABLET IN EVENING, AFTER MEAL
     Dates: start: 2012
  15. Risek [Concomitant]
     Dosage: 20 MG, 1 +0 + 1 +0, 1+1 CAP, IN MORNING AND EVENING, BEFORE MEAL
  16. Celbexx [Concomitant]
  17. METHOTREXATE SODIUM [Concomitant]
     Active Substance: METHOTREXATE SODIUM
  18. COLCHICINE [Concomitant]
     Active Substance: COLCHICINE
     Dosage: 1 + 0 + 0 + 0  1 TAB IN MORNING FOR 2 WEEKS
  19. Gouric [Concomitant]
     Dosage: 80MG 1 X TABLETS ONCE A DAY AFTER MEAL 1 CONTINUE ALTERNATE WITH 0.5TAB
  20. TERIPARATIDE [Concomitant]
     Active Substance: TERIPARATIDE
     Dosage: 1 X INJ. ONCE A DAY FOR 18 MONTHS
     Route: 058
     Dates: start: 202202, end: 202310
  21. Famotid [Concomitant]
     Dosage: 40MG 1X TABLETS, ONCE A DAY, BEFORE MEAL CONTINUE
  22. ITOPRIDE [Concomitant]
     Active Substance: ITOPRIDE
     Dosage: 50 MG, 2X/DAY (1 + 0 + 0 + 1, BEFORE MEAL)
  23. Rigix [Concomitant]
     Route: 065
  24. METHYLCOBALAMIN [Concomitant]
     Active Substance: METHYLCOBALAMIN
     Dosage: 1 DF, 1X/DAY (ONCE A DAY CONTINUE)
  25. PANADOL [Concomitant]
     Active Substance: ACETAMINOPHEN
     Dosage: 500 MG, 2X/DAY (AFTER MEAL, WHEN REQUIRED)
  26. Tonoflex P [Concomitant]
     Dosage: UNK, 1X/DAY (ONCE A DAY WHEN REQUIRED)

REACTIONS (23)
  - Diabetes mellitus inadequate control [Unknown]
  - Knee arthroplasty [Unknown]
  - Pulmonary fibrosis [Unknown]
  - Pneumonia [Unknown]
  - Fracture [Unknown]
  - Oxygen saturation decreased [Unknown]
  - Pain [Unknown]
  - Pyrexia [Unknown]
  - Infection [Unknown]
  - Red blood cell sedimentation rate increased [Unknown]
  - Pain in extremity [Unknown]
  - Hyperuricaemia [Unknown]
  - Off label use [Unknown]
  - Dyspnoea [Unknown]
  - Somnolence [Unknown]
  - Weight increased [Recovering/Resolving]
  - Lung infiltration [Unknown]
  - Arthralgia [Unknown]
  - Diarrhoea [Recovering/Resolving]
  - Blood thyroid stimulating hormone increased [Unknown]
  - Rash pruritic [Unknown]
  - Trigger finger [Unknown]
  - Deformity [Unknown]

NARRATIVE: CASE EVENT DATE: 20220101
